FAERS Safety Report 20876776 (Version 2)
Quarter: 2022Q2

REPORT INFORMATION
  Report Type: Report from Study
  Country: US (occurrence: US)
  Receive Date: 20220526
  Receipt Date: 20220601
  Transmission Date: 20220721
  Serious: Yes (Other)
  Sender: FDA-Public Use
  Company Number: US-TAKEDA-2022TUS026982

PATIENT
  Sex: Female

DRUGS (1)
  1. VEDOLIZUMAB [Suspect]
     Active Substance: VEDOLIZUMAB
     Indication: Crohn^s disease
     Dosage: 300 MILLIGRAM
     Route: 042

REACTIONS (8)
  - Surgery [Unknown]
  - Glaucoma [Unknown]
  - Weight decreased [Unknown]
  - Hypoacusis [Unknown]
  - Decreased appetite [Unknown]
  - Vertigo [Unknown]
  - Arthralgia [Unknown]
  - Drug ineffective [Unknown]
